FAERS Safety Report 4771569-2 (Version None)
Quarter: 2005Q3

REPORT INFORMATION
  Report Type: 
  Country: None (occurrence: None)
  Receive Date: 20050914
  Receipt Date: 20050914
  Transmission Date: 20060218
  Serious: Yes (Hospitalization)
  Sender: FDA-Public Use
  Company Number: None

PATIENT
  Age: 56 Year
  Sex: Male
  Weight: 84 kg

DRUGS (7)
  1. SIMVASTATIN [Suspect]
     Indication: HYPERLIPIDAEMIA
     Dosage: 80 MG PO QDAY
     Route: 048
     Dates: start: 19990401, end: 20050801
  2. GEMFIBROZIL [Suspect]
     Indication: HYPERLIPIDAEMIA
     Dosage: 600 MG PO BID
     Route: 048
     Dates: start: 20050301, end: 20050801
  3. NITROGLYCERIN (SUBLINGUAL) [Concomitant]
  4. OMEPRAZOLE [Concomitant]
  5. ATENOLOL [Concomitant]
  6. ALPRAZOLAM [Concomitant]
  7. HYDROCODONE BITARTRATE + ACETAMINOPHEN [Concomitant]

REACTIONS (6)
  - DIARRHOEA [None]
  - HAEMODIALYSIS [None]
  - NAUSEA [None]
  - RENAL FAILURE ACUTE [None]
  - RHABDOMYOLYSIS [None]
  - VOMITING [None]
